FAERS Safety Report 8381053-5 (Version None)
Quarter: 2012Q2

REPORT INFORMATION
  Report Type: 
  Country: None (occurrence: None)
  Receive Date: 20120523
  Receipt Date: 20120518
  Transmission Date: 20120825
  Serious: Yes (Death)
  Sender: FDA-Public Use
  Company Number: VE-PFIZER INC-2012114313

PATIENT
  Age: 63 Year
  Sex: Female

DRUGS (1)
  1. LIPITOR [Suspect]
     Dosage: UNK

REACTIONS (1)
  - RESPIRATORY ARREST [None]
